FAERS Safety Report 16852127 (Version 1)
Quarter: 2019Q3

REPORT INFORMATION
  Report Type: Spontaneous
  Country: FR (occurrence: FR)
  Receive Date: 20190925
  Receipt Date: 20190925
  Transmission Date: 20191005
  Serious: Yes (Hospitalization)
  Sender: FDA-Public Use
  Company Number: FR-MYLANLABS-2019M1088758

PATIENT
  Age: 48 Year
  Sex: Female
  Weight: 56 kg

DRUGS (8)
  1. EMEND [Suspect]
     Active Substance: APREPITANT
     Indication: PREMEDICATION
     Dosage: 125 MILLIGRAM, QD
     Route: 048
     Dates: start: 20190409, end: 20190409
  2. METHYLPREDNISOLONE MYLAN [Suspect]
     Active Substance: METHYLPREDNISOLONE
     Indication: PREMEDICATION
     Dosage: 100 MILLIGRAM, QD
     Route: 042
     Dates: start: 20190409, end: 20190409
  3. ONDANSETRON [Suspect]
     Active Substance: ONDANSETRON
     Indication: PREMEDICATION
     Dosage: 1 DOSAGE FORM, QD
     Route: 042
     Dates: start: 20190409, end: 20190409
  4. AZANTAC [Suspect]
     Active Substance: RANITIDINE HYDROCHLORIDE
     Indication: PREMEDICATION
     Dosage: 1 DOSAGE FORM, QD
     Route: 042
     Dates: start: 20190409, end: 20190409
  5. PACLITAXEL. [Suspect]
     Active Substance: PACLITAXEL
     Indication: OVARIAN CANCER
     Dosage: 276 MILLIGRAM, QD
     Route: 042
     Dates: start: 20190409, end: 20190409
  6. POLARAMINE [Suspect]
     Active Substance: DEXCHLORPHENIRAMINE MALEATE
     Indication: PREMEDICATION
     Dosage: 1 DOSAGE FORM, QD
     Route: 042
     Dates: start: 20190409, end: 20190409
  7. EMEND [Concomitant]
     Active Substance: APREPITANT
     Indication: PREMEDICATION
     Dosage: 80 MILLIGRAM, QD
     Route: 048
     Dates: start: 20190410, end: 20190411
  8. EMEND [Concomitant]
     Active Substance: APREPITANT
     Dosage: 125 MILLIGRAM, QD
     Route: 048
     Dates: start: 20190409, end: 20190409

REACTIONS (3)
  - Coma [Recovered/Resolved]
  - Seizure [Recovered/Resolved]
  - Hypersensitivity [Recovered/Resolved]

NARRATIVE: CASE EVENT DATE: 20190409
